FAERS Safety Report 15440404 (Version 2)
Quarter: 2019Q1

REPORT INFORMATION
  Report Type: Spontaneous
  Country: FR (occurrence: FR)
  Receive Date: 20180928
  Receipt Date: 20190308
  Transmission Date: 20190417
  Serious: Yes (Other)
  Sender: FDA-Public Use
  Company Number: FR-MYLANLABS-2018M1070265

PATIENT
  Age: 38 Year
  Sex: Female
  Weight: 47.5 kg

DRUGS (1)
  1. VALACYCLOVIR [Suspect]
     Active Substance: VALACYCLOVIR HYDROCHLORIDE
     Indication: HERPES SIMPLEX
     Dosage: 1000 MG, QD
     Route: 048
     Dates: start: 20180308, end: 20180312

REACTIONS (7)
  - Vision blurred [Recovered/Resolved]
  - Dyspnoea [Recovered/Resolved]
  - Decreased appetite [Recovered/Resolved]
  - Speech disorder [Recovered/Resolved]
  - Disturbance in attention [Recovered/Resolved]
  - Memory impairment [Recovered/Resolved]
  - Confusional state [Recovered/Resolved]

NARRATIVE: CASE EVENT DATE: 20180310
